FAERS Safety Report 9759974 (Version 3)
Quarter: 2014Q1

REPORT INFORMATION
  Report Type: Report from Study
  Country: LB (occurrence: LB)
  Receive Date: 20131216
  Receipt Date: 20140123
  Transmission Date: 20141002
  Serious: Yes (Hospitalization)
  Sender: FDA-Public Use
  Company Number: LB-SA-2013SA127291

PATIENT
  Age: 69 Year
  Sex: Female

DRUGS (10)
  1. LANTUS SOLOSTAR [Suspect]
     Indication: DIABETES MELLITUS
     Dosage: DOSE:10 UNIT(S)
     Route: 058
     Dates: start: 201307
  2. SOLOSTAR [Concomitant]
     Dates: start: 201307
  3. DIAMICRON [Concomitant]
     Indication: DIABETES MELLITUS
     Route: 048
  4. GLUCOPHAGE [Concomitant]
     Indication: DIABETES MELLITUS
     Route: 048
  5. AMLOR [Concomitant]
     Route: 048
  6. LASIX [Concomitant]
     Route: 048
  7. CONCOR [Concomitant]
     Route: 048
  8. ZOCOR [Concomitant]
     Route: 048
  9. ELTROXIN [Concomitant]
     Route: 048
  10. ASPICOT [Concomitant]
     Route: 048

REACTIONS (7)
  - Hypertension [Unknown]
  - Thrombophlebitis [Not Recovered/Not Resolved]
  - Hypoaesthesia [Unknown]
  - Hyperglycaemia [Unknown]
  - Skin injury [Not Recovered/Not Resolved]
  - Skin irritation [Not Recovered/Not Resolved]
  - Pain in extremity [Not Recovered/Not Resolved]
